FAERS Safety Report 6621659-4 (Version None)
Quarter: 2010Q1

REPORT INFORMATION
  Report Type: 
  Country: None (occurrence: None)
  Receive Date: 20100309
  Receipt Date: 20100301
  Transmission Date: 20100710
  Serious: Yes (Other)
  Sender: FDA-Public Use
  Company Number: US-GENENTECH-296937

PATIENT
  Age: 53 Year
  Sex: Female

DRUGS (1)
  1. RITUXAN [Suspect]
     Indication: IDIOPATHIC THROMBOCYTOPENIC PURPURA
     Dosage: 375 MG/M2, Q4W
     Route: 065

REACTIONS (4)
  - DEMYELINATION [None]
  - HYPOGAMMAGLOBULINAEMIA [None]
  - LYMPHOCYTE PERCENTAGE INCREASED [None]
  - THROMBOCYTOSIS [None]
